FAERS Safety Report 10371691 (Version 6)
Quarter: 2015Q2

REPORT INFORMATION
  Report Type: Report from Study
  Country: IT (occurrence: IT)
  Receive Date: 20140808
  Receipt Date: 20150511
  Transmission Date: 20150821
  Serious: Yes (Other)
  Sender: FDA-Public Use
  Company Number: IT-009507513-1406ITA002596

PATIENT
  Age: 58 Year
  Sex: Male

DRUGS (2)
  1. REBETOL [Suspect]
     Active Substance: RIBAVIRIN
     Indication: HEPATITIS C
     Dosage: 1000 MG DAILY
     Route: 048
     Dates: start: 20121207, end: 20131115
  2. PEGASYS [Suspect]
     Active Substance: PEGINTERFERON ALFA-2A
     Indication: HEPATITIS C
     Dosage: 180 MICROGRAM, QW
     Route: 058
     Dates: start: 20121207, end: 20131115

REACTIONS (4)
  - Anaemia [Not Recovered/Not Resolved]
  - Thrombocytopenia [Recovered/Resolved]
  - Leukopenia [Recovered/Resolved]
  - Asthenia [Recovered/Resolved]

NARRATIVE: CASE EVENT DATE: 20130107
